FAERS Safety Report 8775444 (Version 1)
Quarter: 2012Q4

REPORT INFORMATION
  Report Type: 
  Country: GB (occurrence: GB)
  Receive Date: 20120910
  Receipt Date: 20120910
  Transmission Date: 20130627
  Serious: Yes (Hospitalization)
  Sender: FDA-Public Use
  Company Number: GB-ROCHE-1119879

PATIENT
  Age: 65 Year
  Sex: Male

DRUGS (14)
  1. MABTHERA [Suspect]
     Indication: RHEUMATOID ARTHRITIS
     Route: 042
     Dates: start: 20120501, end: 20120514
  2. ASPIRIN [Concomitant]
  3. BENDROFLUMETHIAZIDE [Concomitant]
  4. CETIRIZINE [Concomitant]
  5. DOXAZOSIN [Concomitant]
  6. FOLIC ACID [Concomitant]
  7. LANSOPRAZOLE [Concomitant]
  8. METHOTREXATE [Concomitant]
  9. PREDNISOLONE [Concomitant]
  10. PROCHLORPERAZINE [Concomitant]
  11. QVAR [Concomitant]
  12. RAMIPRIL [Concomitant]
  13. SALBUTAMOL [Concomitant]
  14. SIMVASTATIN [Concomitant]

REACTIONS (1)
  - Ulcerative keratitis [Recovering/Resolving]
